FAERS Safety Report 19438217 (Version 2)
Quarter: 2021Q2

REPORT INFORMATION
  Report Type: Spontaneous
  Country: US (occurrence: US)
  Receive Date: 20210618
  Receipt Date: 20210629
  Transmission Date: 20210717
  Serious: Yes (Hospitalization)
  Sender: FDA-Public Use
  Company Number: US-AMGEN-USASP2021092145

PATIENT
  Age: 81 Year
  Sex: Female

DRUGS (1)
  1. REPATHA [Suspect]
     Active Substance: EVOLOCUMAB
     Indication: HYPERCHOLESTEROLAEMIA
     Dosage: 140 MILLIGRAM
     Route: 065

REACTIONS (1)
  - Hospitalisation [Recovered/Resolved]

NARRATIVE: CASE EVENT DATE: 202106
